FAERS Safety Report 25623786 (Version 1)
Quarter: 2025Q3

REPORT INFORMATION
  Report Type: Spontaneous
  Country: IN (occurrence: IN)
  Receive Date: 20250730
  Receipt Date: 20250730
  Transmission Date: 20251020
  Serious: Yes (Death)
  Sender: PFIZER
  Company Number: IN-PFIZER INC-PV202500026726

PATIENT
  Age: 47 Year
  Sex: Male

DRUGS (5)
  1. LORLATINIB [Suspect]
     Active Substance: LORLATINIB
     Route: 048
     Dates: start: 20250113
  2. LORLATINIB [Suspect]
     Active Substance: LORLATINIB
     Dosage: 100 MG, 1X/DAY (0-0-1, CONTINUE)
     Route: 048
     Dates: start: 20250116
  3. MAXGALIN [Concomitant]
  4. LEVETIRACETAM [Concomitant]
     Active Substance: LEVETIRACETAM
  5. MUPIROCIN [Concomitant]
     Active Substance: MUPIROCIN

REACTIONS (3)
  - Death [Fatal]
  - Hypoaesthesia [Unknown]
  - Folliculitis [Recovering/Resolving]
